FAERS Safety Report 5225727-3 (Version None)
Quarter: 2007Q1

REPORT INFORMATION
  Report Type: 
  Country: None (occurrence: None)
  Receive Date: 20070130
  Receipt Date: 20070130
  Transmission Date: 20070707
  Serious: Yes (Other)
  Sender: FDA-Public Use
  Company Number: None

PATIENT
  Age: 31 Year
  Sex: Female
  Weight: 52.1637 kg

DRUGS (1)
  1. CELEXA [Suspect]
     Indication: DEPRESSION
     Dosage: 40 MG  1 1/2 TAB PO DAILY
     Dates: start: 20030610

REACTIONS (3)
  - DIZZINESS [None]
  - UNEVALUABLE EVENT [None]
  - VOMITING [None]
